FAERS Safety Report 6084990-X (Version None)
Quarter: 2009Q1

REPORT INFORMATION
  Report Type: 
  Country: None (occurrence: None)
  Receive Date: 20090220
  Receipt Date: 20090212
  Transmission Date: 20090719
  Serious: Yes (Hospitalization)
  Sender: FDA-Public Use
  Company Number: US-JNJFOC-20090203712

PATIENT
  Sex: Male
  Weight: 102.06 kg

DRUGS (4)
  1. FENTANYL TRANSDERMAL SYSTEM [Suspect]
     Dosage: 75 UG/HR TWO EVERY 72 HOURS
     Route: 062
  2. FENTANYL TRANSDERMAL SYSTEM [Suspect]
     Indication: ABDOMINAL PAIN
     Route: 062
  3. PREVACID [Concomitant]
     Indication: GASTROOESOPHAGEAL REFLUX DISEASE
     Route: 048
  4. ACTIQ [Concomitant]
     Indication: BREAKTHROUGH PAIN
     Dosage: FORMULATION-SOLID DRUG MATRIX, MEDICATION TAKEN AS NEEDED
     Route: 002

REACTIONS (14)
  - ABDOMINAL PAIN [None]
  - ADRENAL INSUFFICIENCY [None]
  - ADVERSE EVENT [None]
  - ANOREXIA [None]
  - APPENDICITIS [None]
  - APPLICATION SITE BURN [None]
  - APPLICATION SITE ERYTHEMA [None]
  - DELAYED RECOVERY FROM ANAESTHESIA [None]
  - DEPRESSION [None]
  - IMPAIRED GASTRIC EMPTYING [None]
  - INAPPROPRIATE SCHEDULE OF DRUG ADMINISTRATION [None]
  - LOSS OF CONSCIOUSNESS [None]
  - THYROID FUNCTION TEST ABNORMAL [None]
  - WEIGHT DECREASED [None]
